FAERS Safety Report 6069344-4 (Version None)
Quarter: 2009Q1

REPORT INFORMATION
  Report Type: 
  Country: None (occurrence: None)
  Receive Date: 20090206
  Receipt Date: 20090203
  Transmission Date: 20090719
  Serious: Yes (Life-Threatening, Hospitalization)
  Sender: FDA-Public Use
  Company Number: RU-PFIZER INC-2009165626

PATIENT

DRUGS (10)
  1. BLINDED *DICLOFENAC [Suspect]
     Indication: OSTEOARTHRITIS
     Dosage: UNK
     Route: 048
     Dates: start: 20080926, end: 20090119
  2. BLINDED *DICLOFENAC SODIUM [Suspect]
     Indication: OSTEOARTHRITIS
     Dosage: UNK
     Route: 048
     Dates: start: 20080926, end: 20090119
  3. BLINDED *PLACEBO [Suspect]
     Indication: OSTEOARTHRITIS
     Dosage: UNK
     Route: 048
     Dates: start: 20080926, end: 20090119
  4. BLINDED CELECOXIB [Suspect]
     Indication: OSTEOARTHRITIS
     Dosage: UNK
     Route: 048
     Dates: start: 20080926, end: 20090119
  5. BLINDED DICLOFENAC SODIUM [Suspect]
     Dosage: UNK
     Route: 048
     Dates: start: 20080926, end: 20090119
  6. AMOXICILLIN TRIHYDRATE [Concomitant]
     Route: 048
     Dates: start: 20090124, end: 20090131
  7. ACETYLCYSTEINE [Concomitant]
     Route: 048
     Dates: start: 20090124, end: 20090131
  8. FENOTEROL [Concomitant]
     Route: 048
     Dates: start: 20081225, end: 20090131
  9. CAPTOPRIL [Concomitant]
     Route: 048
     Dates: start: 20060101, end: 20090119
  10. METHYLDOPA [Concomitant]
     Route: 048
     Dates: start: 20090119

REACTIONS (1)
  - ARRHYTHMIA [None]
